FAERS Safety Report 7301341-0 (Version None)
Quarter: 2011Q1

REPORT INFORMATION
  Report Type: 
  Country: None (occurrence: None)
  Receive Date: 20110113
  Receipt Date: 20101108
  Transmission Date: 20110831
  Serious: No
  Sender: FDA-Public Use
  Company Number: US-001379

PATIENT
  Sex: Female
  Weight: 17.2367 kg

DRUGS (1)
  1. KUVAN [Suspect]
     Indication: PHENYLKETONURIA
     Dosage: (350 MG QD ORAL)
     Route: 048
     Dates: start: 20101022, end: 20101029

REACTIONS (5)
  - AMINO ACID LEVEL INCREASED [None]
  - FEELING ABNORMAL [None]
  - ABNORMAL BEHAVIOUR [None]
  - PHARYNGITIS STREPTOCOCCAL [None]
  - IRRITABILITY [None]
